FAERS Safety Report 11683984 (Version 1)
Quarter: 2015Q4

REPORT INFORMATION
  Report Type: Spontaneous
  Country: TR (occurrence: TR)
  Receive Date: 20151029
  Receipt Date: 20151029
  Transmission Date: 20160304
  Serious: Yes (Hospitalization, Other)
  Sender: FDA-Public Use
  Company Number: PHHY2015TR136697

PATIENT
  Age: 20 Year
  Sex: Female

DRUGS (2)
  1. CYPROTERONE+ETHINYLESTRADIOL [Suspect]
     Active Substance: CYPROTERONE\ETHINYL ESTRADIOL
     Indication: MENSTRUATION IRREGULAR
  2. CYPROTERONE+ETHINYLESTRADIOL [Suspect]
     Active Substance: CYPROTERONE\ETHINYL ESTRADIOL
     Indication: OVARIAN CYST
     Route: 065

REACTIONS (1)
  - Papillophlebitis [Recovered/Resolved]
